FAERS Safety Report 8587589-6 (Version None)
Quarter: 2012Q3

REPORT INFORMATION
  Report Type: 
  Country: None (occurrence: None)
  Receive Date: 20120810
  Receipt Date: 20060324
  Transmission Date: 20120928
  Serious: Yes (Death)
  Sender: FDA-Public Use
  Company Number: PHHY2006CA009476

PATIENT
  Sex: Male

DRUGS (1)
  1. SANDOSTATIN LAR [Suspect]
     Indication: HEPATIC NEOPLASM MALIGNANT
     Dosage: 20 MG, EVERY 4 WEEKS
     Route: 030
     Dates: start: 20050921, end: 20060105

REACTIONS (1)
  - DEATH [None]
